FAERS Safety Report 10420675 (Version 1)
Quarter: 2014Q3

REPORT INFORMATION
  Report Type: Spontaneous
  Country: US (occurrence: None)
  Receive Date: 20140829
  Receipt Date: 20140829
  Transmission Date: 20150326
  Serious: Yes (Disabling)
  Sender: FDA-Public Use
  Company Number: None

PATIENT
  Age: 58 Year
  Sex: Female
  Weight: 70.31 kg

DRUGS (1)
  1. EXEMESTANE 25 MG [Suspect]
     Active Substance: EXEMESTANE
     Indication: CANCER HORMONAL THERAPY
     Dosage: 1 PILL  ONCE DAILY TAKEN BY MOUTH
     Route: 048
     Dates: start: 20140718, end: 20140724

REACTIONS (3)
  - Pharyngeal oedema [None]
  - Pharyngeal cyst [None]
  - Ligament rupture [None]

NARRATIVE: CASE EVENT DATE: 20140718
